FAERS Safety Report 24342132 (Version 1)
Quarter: 2024Q3

REPORT INFORMATION
  Report Type: Spontaneous
  Country: BE (occurrence: BE)
  Receive Date: 20240920
  Receipt Date: 20240920
  Transmission Date: 20241016
  Serious: Yes (Life-Threatening, Hospitalization, Other)
  Sender: SANDOZ
  Company Number: BE-ROCHE-2832936

PATIENT
  Age: 63 Year
  Sex: Female

DRUGS (5)
  1. MYCOPHENOLATE MOFETIL [Suspect]
     Active Substance: MYCOPHENOLATE MOFETIL
     Indication: Immunosuppression
     Dosage: 1000 MG, QD
     Route: 065
     Dates: start: 201607
  2. MYCOPHENOLATE MOFETIL [Suspect]
     Active Substance: MYCOPHENOLATE MOFETIL
     Indication: Immunosuppressant drug therapy
  3. TACROLIMUS [Suspect]
     Active Substance: TACROLIMUS
     Indication: Immunosuppressant drug therapy
     Dosage: 0.5 MG, QD
     Route: 048
  4. TACROLIMUS [Suspect]
     Active Substance: TACROLIMUS
     Indication: Immunosuppression
     Dosage: 4.5 MG, QD
     Route: 048
     Dates: start: 201607
  5. VITAMIN D [Concomitant]
     Active Substance: VITAMIN D NOS
     Indication: Mineral supplementation
     Dosage: UNK
     Route: 065
     Dates: start: 2016

REACTIONS (3)
  - Histoplasmosis disseminated [Recovered/Resolved]
  - Histoplasmosis disseminated [Recovered/Resolved]
  - Small intestinal obstruction [Recovered/Resolved]

NARRATIVE: CASE EVENT DATE: 20190101
